FAERS Safety Report 5792609-8 (Version None)
Quarter: 2008Q2

REPORT INFORMATION
  Report Type: 
  Country: None (occurrence: None)
  Receive Date: 20080626
  Receipt Date: 20080614
  Transmission Date: 20081010
  Serious: Yes (Other)
  Sender: FDA-Public Use
  Company Number: US-PFIZER INC-2008051324

PATIENT
  Sex: Male
  Weight: 106.81 kg

DRUGS (6)
  1. CHANTIX [Suspect]
     Indication: SMOKING CESSATION THERAPY
     Dosage: TEXT:1MG BID EVERYDAY TDD:2MG
  2. LEVOTHYROXINE SODIUM [Concomitant]
  3. TRILEPTAL [Concomitant]
  4. NEURONTIN [Concomitant]
  5. TRAZODONE HCL [Concomitant]
  6. CLONAZEPAM [Concomitant]

REACTIONS (2)
  - SUICIDAL IDEATION [None]
  - TACHYCARDIA [None]
